FAERS Safety Report 23048325 (Version 1)
Quarter: 2023Q4

REPORT INFORMATION
  Report Type: Spontaneous
  Country: US (occurrence: US)
  Receive Date: 20231010
  Receipt Date: 20231010
  Transmission Date: 20240110
  Serious: No
  Sender: FDA-Public Use
  Company Number: US-AMGEN-USASP2023175580

PATIENT

DRUGS (1)
  1. PROLIA [Suspect]
     Active Substance: DENOSUMAB
     Indication: Osteoporosis
     Dosage: UNK
     Route: 065

REACTIONS (6)
  - Tachycardia [Unknown]
  - Chest discomfort [Unknown]
  - Exercise tolerance decreased [Unknown]
  - Chest pain [Unknown]
  - Hypertension [Unknown]
  - Fatigue [Unknown]
